FAERS Safety Report 23801737 (Version 1)
Quarter: 2024Q2

REPORT INFORMATION
  Report Type: Report from Study
  Country: US (occurrence: US)
  Receive Date: 20240501
  Receipt Date: 20240501
  Transmission Date: 20240715
  Serious: Yes (Hospitalization)
  Sender: FDA-Public Use
  Company Number: US-ABBVIE-5737240

PATIENT
  Age: 72 Year
  Sex: Female
  Weight: 128.36 kg

DRUGS (19)
  1. CREON [Suspect]
     Active Substance: PANCRELIPASE AMYLASE\PANCRELIPASE LIPASE\PANCRELIPASE PROTEASE
     Indication: Pancreatic failure
     Dosage: THREE OR FIVE CAPSULES. TWO CAPSULE WITH MEALS AND ONE CAPSULE WITH SNACK,?FORM STRENGTH: 36000 UNIT
     Route: 048
     Dates: start: 20240126
  2. LORATADINE [Concomitant]
     Active Substance: LORATADINE
     Indication: Sinusitis
     Route: 065
  3. ZYPREXA [Concomitant]
     Active Substance: OLANZAPINE
     Indication: Sleep disorder
     Route: 065
  4. VITAMIN D3 [Concomitant]
     Active Substance: CHOLECALCIFEROL
     Indication: Vitamin supplementation
     Route: 065
  5. BUSPAR [Concomitant]
     Active Substance: BUSPIRONE HYDROCHLORIDE
     Indication: Anxiety
     Route: 065
  6. XELODA [Concomitant]
     Active Substance: CAPECITABINE
     Indication: Chemotherapy
     Dosage: FORM STRENGTH: 500 MILLIGRAM
     Route: 065
  7. PEPCID [Concomitant]
     Active Substance: FAMOTIDINE
     Indication: Dyspepsia
     Route: 065
  8. QVAR [Concomitant]
     Active Substance: BECLOMETHASONE DIPROPIONATE
     Indication: Sinusitis
     Dosage: QVAR INHALER
     Route: 065
  9. COENZYME Q10 [Concomitant]
     Active Substance: DIETARY SUPPLEMENT\UBIDECARENONE
     Indication: Enzyme supplementation
     Route: 065
  10. PROTONIX [Concomitant]
     Active Substance: PANTOPRAZOLE SODIUM
     Indication: Dyspepsia
     Route: 065
  11. D-MANNOSE [Concomitant]
     Indication: Supplementation therapy
     Route: 065
  12. TRAZODONE [Concomitant]
     Active Substance: TRAZODONE HYDROCHLORIDE
     Indication: Sleep disorder
     Route: 065
  13. OXYCODONE [Concomitant]
     Active Substance: OXYCODONE\OXYCODONE HYDROCHLORIDE
     Indication: Pain
     Route: 065
  14. KEFLEX [Concomitant]
     Active Substance: CEPHALEXIN
     Indication: Urinary tract infection
     Route: 065
  15. HUMALOG [Concomitant]
     Active Substance: INSULIN LISPRO
     Indication: Type 2 diabetes mellitus
     Route: 065
  16. XARELTO [Concomitant]
     Active Substance: RIVAROXABAN
     Indication: Cardiac failure congestive
     Route: 065
  17. METHADONE [Concomitant]
     Active Substance: METHADONE HYDROCHLORIDE
     Indication: Pain management
     Route: 065
  18. DULOXETINE [Concomitant]
     Active Substance: DULOXETINE
     Indication: Pain management
     Route: 065
  19. KYTRIL [Concomitant]
     Active Substance: GRANISETRON HYDROCHLORIDE
     Indication: Vomiting
     Route: 065

REACTIONS (7)
  - Hallucination [Recovered/Resolved]
  - Peripheral swelling [Recovering/Resolving]
  - Cardiac failure congestive [Recovering/Resolving]
  - Dizziness [Recovered/Resolved]
  - Fall [Recovering/Resolving]
  - Orthostatic hypotension [Recovering/Resolving]
  - Blood potassium decreased [Recovered/Resolved]

NARRATIVE: CASE EVENT DATE: 20240301
